FAERS Safety Report 6345097-7 (Version None)
Quarter: 2009Q3

REPORT INFORMATION
  Report Type: 
  Country: None (occurrence: None)
  Receive Date: 20090909
  Receipt Date: 20090901
  Transmission Date: 20100115
  Serious: Yes (Other)
  Sender: FDA-Public Use
  Company Number: US-ELI_LILLY_AND_COMPANY-US200908004042

PATIENT
  Sex: Male

DRUGS (11)
  1. BYETTA [Suspect]
     Indication: TYPE 2 DIABETES MELLITUS
     Dosage: 5 UG, UNK
     Route: 058
     Dates: end: 20090811
  2. METFORMIN HCL [Concomitant]
     Dosage: 1000 MG, EACH MORNING
     Dates: start: 20090611
  3. METFORMIN HCL [Concomitant]
     Dosage: 1000 MG, EACH EVENING
     Dates: start: 20090611
  4. GLIPIZIDE [Concomitant]
     Dosage: 10 MG, DAILY (1/D)
     Route: 048
     Dates: start: 20090611
  5. PROTONIX /01263202/ [Concomitant]
     Dosage: 40 MG, DAILY (1/D)
     Route: 048
     Dates: start: 20090611
  6. HYDROCODONE BITARTRATE AND ACETAMINOPHEN [Concomitant]
     Dosage: UNK, EACH MORNING
     Dates: start: 20090611
  7. JANUVIA [Concomitant]
     Dosage: 100 MG, EACH MORNING
     Route: 048
     Dates: start: 20090611
  8. ACTOS /SCH/ [Concomitant]
     Dosage: 30 MG, EACH MORNING
     Route: 048
     Dates: start: 20090611
  9. ALLERTEC [Concomitant]
     Dosage: UNK, EACH MORNING
  10. EXFORGE /01634301/ [Concomitant]
     Dates: start: 20090611
  11. HYDROCHLOROTHIAZIDE [Concomitant]
     Dates: start: 20090611

REACTIONS (1)
  - HEPATITIS [None]
